FAERS Safety Report 13508384 (Version 1)
Quarter: 2017Q2

REPORT INFORMATION
  Report Type: Spontaneous
  Country: RU (occurrence: RU)
  Receive Date: 20170503
  Receipt Date: 20170503
  Transmission Date: 20170830
  Serious: Yes (Hospitalization)
  Sender: FDA-Public Use
  Company Number: RU-ASTRAZENECA-2017SE43005

PATIENT
  Age: 55 Year
  Sex: Female
  Weight: 77 kg

DRUGS (9)
  1. ASPIRIN. [Concomitant]
     Active Substance: ASPIRIN
     Dates: end: 20170404
  2. BRILINTA [Suspect]
     Active Substance: TICAGRELOR
     Indication: PROPHYLAXIS
     Route: 048
     Dates: start: 20170322, end: 20170404
  3. ROSUCARD [Concomitant]
     Active Substance: ROSUVASTATIN CALCIUM
     Dates: start: 20170404, end: 20170413
  4. WARFARIN [Suspect]
     Active Substance: WARFARIN
     Route: 065
     Dates: start: 20170404, end: 20170413
  5. LORISTA [Concomitant]
     Active Substance: LOSARTAN POTASSIUM
     Dates: start: 20170404, end: 20170413
  6. BRILINTA [Suspect]
     Active Substance: TICAGRELOR
     Indication: PROPHYLAXIS
     Route: 048
     Dates: start: 20170414
  7. VEROSPIRON [Concomitant]
     Active Substance: SPIRONOLACTONE
     Dates: start: 20170404, end: 20170413
  8. CONCOR [Concomitant]
     Active Substance: BISOPROLOL FUMARATE
     Dates: start: 20170404, end: 20170413
  9. PLAVIX [Concomitant]
     Active Substance: CLOPIDOGREL BISULFATE
     Dates: start: 20170404, end: 20170413

REACTIONS (5)
  - Fatigue [Not Recovered/Not Resolved]
  - Product use issue [Unknown]
  - Epistaxis [Not Recovered/Not Resolved]
  - Contusion [Not Recovered/Not Resolved]
  - Off label use [Unknown]

NARRATIVE: CASE EVENT DATE: 20170322
